FAERS Safety Report 9395884 (Version 1)
Quarter: 2013Q3

REPORT INFORMATION
  Report Type: Spontaneous
  Country: FR (occurrence: None)
  Receive Date: 20130708
  Receipt Date: 20130708
  Transmission Date: 20140515
  Serious: Yes (Hospitalization)
  Sender: FDA-Public Use
  Company Number: 1745057

PATIENT
  Age: 67 Year
  Sex: Male

DRUGS (2)
  1. CARBOPLATIN [Suspect]
     Indication: ADENOCARCINOMA
     Route: 042
     Dates: start: 20120518, end: 20120518
  2. ALIMTA [Suspect]
     Indication: ADENOCARCINOMA
     Route: 042
     Dates: start: 20120518, end: 20120518

REACTIONS (9)
  - Subileus [None]
  - Febrile neutropenia [None]
  - Thrombocytopenia [None]
  - General physical health deterioration [None]
  - Weight decreased [None]
  - Hyperthermia [None]
  - Staphylococcal infection [None]
  - Toxicity to various agents [None]
  - Metastases to bone [None]
